FAERS Safety Report 17060948 (Version 1)
Quarter: 2019Q4

REPORT INFORMATION
  Report Type: Spontaneous
  Country: US (occurrence: US)
  Receive Date: 20191121
  Receipt Date: 20191121
  Transmission Date: 20200122
  Serious: Yes (Other)
  Sender: FDA-Public Use
  Company Number: NVSC2019US041989

PATIENT
  Sex: Female

DRUGS (2)
  1. LETROZOLE. [Suspect]
     Active Substance: LETROZOLE
     Indication: PRODUCT USED FOR UNKNOWN INDICATION
     Dosage: UNK
     Route: 065
     Dates: end: 201906
  2. IBRANCE [Suspect]
     Active Substance: PALBOCICLIB
     Indication: PRODUCT USED FOR UNKNOWN INDICATION
     Dosage: 125 MG (3 WEEKS ON AND ONE WEEK OFF)
     Route: 048

REACTIONS (6)
  - Night sweats [Unknown]
  - Joint stiffness [Unknown]
  - Arthralgia [Unknown]
  - Pancytopenia [Unknown]
  - Discomfort [Unknown]
  - Hot flush [Unknown]
